FAERS Safety Report 7774867-3 (Version None)
Quarter: 2011Q3

REPORT INFORMATION
  Report Type: 
  Country: None (occurrence: None)
  Receive Date: 20110923
  Receipt Date: 20100923
  Transmission Date: 20111222
  Serious: No
  Sender: FDA-Public Use
  Company Number: US-ABBOTT-10P-163-0673659-00

PATIENT
  Sex: Female
  Weight: 52.21 kg

DRUGS (2)
  1. VICOPROFEN [Suspect]
     Indication: PAIN
     Dosage: 5/500 MG THREE TIMES A DAY
     Dates: start: 20100101
  2. VICOPROFEN [Suspect]
     Indication: FIBROMYALGIA

REACTIONS (2)
  - TABLET PHYSICAL ISSUE [None]
  - DRUG INEFFECTIVE [None]
